FAERS Safety Report 4492649-5 (Version None)
Quarter: 2004Q4

REPORT INFORMATION
  Report Type: 
  Country: None (occurrence: None)
  Receive Date: 20041104
  Receipt Date: 20041104
  Transmission Date: 20050328
  Serious: Yes (Hospitalization)
  Sender: FDA-Public Use
  Company Number: None

PATIENT
  Sex: Female
  Weight: 33 kg

DRUGS (5)
  1. MIACALCIN [Suspect]
     Indication: BONE DENSITY DECREASED
     Dosage: 200 IU/DAY - INTRANASAL
     Route: 050
     Dates: start: 20040719, end: 20041013
  2. SOLU-MEDROL [Concomitant]
  3. PREDNISONE [Concomitant]
  4. MERCAPTOPURINE [Concomitant]
  5. VITAMIN D [Concomitant]

REACTIONS (2)
  - COMPLEX PARTIAL SEIZURES [None]
  - TREATMENT NONCOMPLIANCE [None]
